FAERS Safety Report 15374109 (Version 1)
Quarter: 2018Q3

REPORT INFORMATION
  Report Type: Spontaneous
  Country: US (occurrence: US)
  Receive Date: 20180905
  Receipt Date: 20180905
  Transmission Date: 20181010
  Serious: Yes (Other)
  Sender: FDA-Public Use
  Company Number: None

PATIENT
  Age: 75 Year
  Sex: Male
  Weight: 83.25 kg

DRUGS (14)
  1. OXYCONTIN [Concomitant]
     Active Substance: OXYCODONE HYDROCHLORIDE
  2. MOMETASONE [Concomitant]
     Active Substance: MOMETASONE
  3. DICLOFENAC [Concomitant]
     Active Substance: DICLOFENAC
  4. MIRALAX [Concomitant]
     Active Substance: POLYETHYLENE GLYCOL 3350
  5. PREDNISONE. [Suspect]
     Active Substance: PREDNISONE
     Indication: OEDEMA
     Dosage: ?          QUANTITY:2 DF DOSAGE FORM;?
     Route: 048
  6. XYZAL [Concomitant]
     Active Substance: LEVOCETIRIZINE DIHYDROCHLORIDE
  7. BENAZEPRIL [Concomitant]
     Active Substance: BENAZEPRIL HYDROCHLORIDE
  8. VITAMIN D [Concomitant]
     Active Substance: CHOLECALCIFEROL
  9. ASTELIN [Concomitant]
     Active Substance: AZELASTINE HYDROCHLORIDE
  10. FENOFIBRATE. [Concomitant]
     Active Substance: FENOFIBRATE
  11. ROSUVASTATIN. [Concomitant]
     Active Substance: ROSUVASTATIN
  12. OMPERPRAZOLE [Concomitant]
  13. CALCIUM [Concomitant]
     Active Substance: CALCIUM
  14. VITAMIN E [Concomitant]
     Active Substance: .ALPHA.-TOCOPHEROL

REACTIONS (8)
  - Musculoskeletal stiffness [None]
  - Vitreous floaters [None]
  - Contusion [None]
  - Skin fragility [None]
  - Myalgia [None]
  - Arthralgia [None]
  - Fatigue [None]
  - Peripheral swelling [None]
